FAERS Safety Report 18619047 (Version 1)
Quarter: 2020Q4

REPORT INFORMATION
  Report Type: Report from Study
  Country: CA (occurrence: CA)
  Receive Date: 20201215
  Receipt Date: 20201215
  Transmission Date: 20210114
  Serious: Yes (Death, Life-Threatening, Hospitalization)
  Sender: FDA-Public Use
  Company Number: PHHO1993CA00153

PATIENT
  Age: 40 Year
  Sex: Male

DRUGS (8)
  1. DDC [Concomitant]
     Indication: PRODUCT USED FOR UNKNOWN INDICATION
     Dosage: 9.75 MG, OT
     Route: 048
     Dates: start: 19911007, end: 19930207
  2. CLOFAZIMINE [Suspect]
     Active Substance: CLOFAZIMINE
     Indication: ACQUIRED IMMUNODEFICIENCY SYNDROME
     Dosage: 100 MG, OT
     Route: 048
     Dates: start: 19921214, end: 19930504
  3. CIPROFLOXACIN. [Suspect]
     Active Substance: CIPROFLOXACIN
     Indication: ACQUIRED IMMUNODEFICIENCY SYNDROME
     Dosage: 750 MG, BID
     Route: 048
     Dates: start: 19921214, end: 19930504
  4. DAPSONE. [Suspect]
     Active Substance: DAPSONE
     Indication: ACQUIRED IMMUNODEFICIENCY SYNDROME
     Dosage: MG,OT
     Route: 048
     Dates: start: 19890707, end: 19921223
  5. DIHYDROTACHYSTEROL [Concomitant]
     Active Substance: DIHYDROTACHYSTEROL
     Indication: PRODUCT USED FOR UNKNOWN INDICATION
     Dosage: MG,OT
     Route: 048
     Dates: start: 19930208
  6. AZT [Concomitant]
     Active Substance: ZIDOVUDINE
     Indication: PRODUCT USED FOR UNKNOWN INDICATION
     Dosage: 600 MG, OT
     Route: 048
     Dates: end: 19921223
  7. RIFAMPICIN [Suspect]
     Active Substance: RIFAMPIN
     Indication: ACQUIRED IMMUNODEFICIENCY SYNDROME
     Dosage: 600 MG, OT
     Route: 048
     Dates: start: 19921214, end: 19930504
  8. EBUTOL [Suspect]
     Active Substance: ETHAMBUTOL HYDROCHLORIDE
     Indication: ACQUIRED IMMUNODEFICIENCY SYNDROME
     Dosage: 800 MG, OT
     Route: 048
     Dates: start: 19921214, end: 19930504

REACTIONS (1)
  - Dyspnoea [Fatal]

NARRATIVE: CASE EVENT DATE: 19930512
